FAERS Safety Report 6187969-2 (Version None)
Quarter: 2009Q2

REPORT INFORMATION
  Report Type: 
  Country: None (occurrence: None)
  Receive Date: 20090513
  Receipt Date: 20090504
  Transmission Date: 20091009
  Serious: Yes (Life-Threatening, Hospitalization)
  Sender: FDA-Public Use
  Company Number: IN-ROCHE-631860

PATIENT
  Age: 40 Year
  Sex: Male
  Weight: 74 kg

DRUGS (4)
  1. ZENAPAX [Suspect]
     Indication: DRUG USE FOR UNKNOWN INDICATION
     Dosage: FORM: INFUSION.
     Route: 042
  2. TACROLIMUS [Concomitant]
  3. MMF [Concomitant]
  4. PREDNISOLONE [Concomitant]

REACTIONS (1)
  - TRANSPLANT REJECTION [None]
